FAERS Safety Report 8623044-2 (Version None)
Quarter: 2012Q3

REPORT INFORMATION
  Report Type: 
  Country: None (occurrence: None)
  Receive Date: 20120827
  Receipt Date: 20120820
  Transmission Date: 20120928
  Serious: Yes (Hospitalization)
  Sender: FDA-Public Use
  Company Number: US-JNJFOC-20120810651

PATIENT
  Sex: Male
  Weight: 25.1 kg

DRUGS (7)
  1. FOLIC ACID [Concomitant]
  2. MULTI-VITAMINS [Concomitant]
  3. CHOLECALCIFEROL [Concomitant]
  4. CIMZIA [Concomitant]
     Route: 042
     Dates: start: 20101217
  5. CALCIUM CARBONATE VITAMIN D [Concomitant]
  6. REMICADE [Suspect]
     Indication: INFLAMMATORY BOWEL DISEASE
     Route: 042
  7. FERROUS SULFATE TAB [Concomitant]

REACTIONS (1)
  - WOUND INFECTION [None]
